FAERS Safety Report 7343839-5 (Version None)
Quarter: 2011Q1

REPORT INFORMATION
  Report Type: 
  Country: None (occurrence: None)
  Receive Date: 20110310
  Receipt Date: 20110303
  Transmission Date: 20110831
  Serious: Yes (Hospitalization)
  Sender: FDA-Public Use
  Company Number: JP-ROCHE-758890

PATIENT
  Sex: Female
  Weight: 47 kg

DRUGS (6)
  1. DIART [Concomitant]
     Route: 048
     Dates: start: 20050101
  2. AMLODIPINE BESILATE [Concomitant]
     Dosage: DRUG REPORTED: AMLODIN OD(AMLODIPINE BESILATE)
     Route: 048
     Dates: start: 20050101
  3. TAMIFLU [Suspect]
     Route: 048
     Dates: start: 20110125, end: 20110125
  4. WARFARIN POTASSIUM [Concomitant]
     Route: 048
     Dates: start: 20050101
  5. TAMIFLU [Suspect]
     Indication: INFLUENZA
     Route: 048
     Dates: start: 20110124, end: 20110124
  6. TAMIFLU [Suspect]
     Dosage: DISCONTINUED.
     Route: 048
     Dates: start: 20110126, end: 20110126

REACTIONS (2)
  - LIVER DISORDER [None]
  - RHABDOMYOLYSIS [None]
